FAERS Safety Report 23857243 (Version 1)
Quarter: 2024Q2

REPORT INFORMATION
  Report Type: Spontaneous
  Country: CN (occurrence: CN)
  Receive Date: 20240515
  Receipt Date: 20240515
  Transmission Date: 20240716
  Serious: Yes (Hospitalization, Disabling)
  Sender: FDA-Public Use
  Company Number: CN-ORGANON-O2405CHN001048

PATIENT
  Age: 22 Year
  Sex: Male
  Weight: 65 kg

DRUGS (13)
  1. SINGULAIR [Suspect]
     Active Substance: MONTELUKAST SODIUM
     Indication: Cough
     Dosage: 1 TAB, QD, PO||
     Route: 048
     Dates: start: 20240225, end: 20240308
  2. ENOXAPARIN SODIUM [Suspect]
     Active Substance: ENOXAPARIN SODIUM
     Indication: Venous thrombosis
     Dosage: 0.4 ML, QD, SUBCUTANEOUS INJECTION
     Route: 058
     Dates: start: 20240226, end: 20240306
  3. DEXAMETHASONE SODIUM PHOSPHATE [Suspect]
     Active Substance: DEXAMETHASONE PHOSPHATE\DEXAMETHASONE SODIUM PHOSPHATE
     Indication: Pneumonia
     Dosage: 5 MG, QD, IV DRIP
     Route: 041
     Dates: start: 20240225, end: 20240227
  4. SIMNOTRELVIR [Suspect]
     Active Substance: SIMNOTRELVIR
     Indication: COVID-19
     Dosage: 3 TABS, BID, PO|
     Route: 048
     Dates: start: 20230225, end: 20240301
  5. METHOXYPHENAMINE HYDROCHLORIDE [Suspect]
     Active Substance: METHOXYPHENAMINE HYDROCHLORIDE
     Indication: Cough
     Dosage: 2 TABS, QD, PO
     Route: 048
     Dates: start: 20240225, end: 20240306
  6. LEVOFLOXACIN SODIUM [Suspect]
     Active Substance: LEVOFLOXACIN SODIUM
     Indication: Pneumonia
     Dosage: 100 ML, QD, IV DRIP
     Route: 041
     Dates: start: 20240225, end: 20240228
  7. METHYLPREDNISOLONE SODIUM SUCCINATE [Suspect]
     Active Substance: METHYLPREDNISOLONE SODIUM SUCCINATE
     Indication: Pneumonia
     Dosage: 40 MG, TID, IV
     Route: 042
     Dates: start: 20240225, end: 20240225
  8. THYMALFASIN [Suspect]
     Active Substance: THYMALFASIN
     Indication: Immune enhancement therapy
     Dosage: 1.6 MG, 4 TIMES EVERY 7 DAYS, SQ
     Route: 058
     Dates: start: 20240227, end: 20240305
  9. ASCORBIC ACID [Suspect]
     Active Substance: ASCORBIC ACID
     Indication: Vitamin supplementation
     Dosage: 2 G, QD, IV DRIP
     Route: 041
     Dates: start: 20240226, end: 20240325
  10. SODIUM CHLORIDE [Concomitant]
     Active Substance: SODIUM CHLORIDE
     Dosage: 10 ML, QD, IV
     Route: 042
     Dates: start: 20240225, end: 20240225
  11. SODIUM CHLORIDE [Concomitant]
     Active Substance: SODIUM CHLORIDE
     Dosage: 100 ML, QD, IV DRIP
     Route: 041
     Dates: start: 20240225, end: 20240327
  12. STERILE WATER [Concomitant]
     Active Substance: WATER
     Dosage: 1 ML, 4 TIMES EVERY 7 DAYS, SQ
     Route: 058
     Dates: start: 20240227, end: 20240305
  13. DEXTROSE [Concomitant]
     Active Substance: DEXTROSE\DEXTROSE MONOHYDRATE
     Dosage: 500 ML, QD, IV DRIP
     Route: 041
     Dates: start: 20240226, end: 20240305

REACTIONS (2)
  - Hepatic enzyme increased [Recovering/Resolving]
  - Product use in unapproved indication [Unknown]

NARRATIVE: CASE EVENT DATE: 20240305
